FAERS Safety Report 4722458-0 (Version None)
Quarter: 2005Q3

REPORT INFORMATION
  Report Type: 
  Country: None (occurrence: None)
  Receive Date: 20050722
  Receipt Date: 20050427
  Transmission Date: 20060218
  Serious: No
  Sender: FDA-Public Use
  Company Number: US-GLAXOSMITHKLINE-A0556048A

PATIENT
  Age: 51 Year
  Sex: Female

DRUGS (12)
  1. AVANDIA [Suspect]
     Dosage: 4MG TWICE PER DAY
     Route: 048
     Dates: start: 20050425
  2. METFORMIN [Concomitant]
  3. TRAMADOL HCL [Concomitant]
  4. ALBUTEROL [Concomitant]
  5. DETROL [Concomitant]
  6. LEVOXYL [Concomitant]
  7. EFFEXOR [Concomitant]
  8. KLONOPIN [Concomitant]
  9. SEROQUEL [Concomitant]
  10. ACTIVELLA [Concomitant]
  11. PROTONIX [Concomitant]
  12. INSULIN [Concomitant]

REACTIONS (2)
  - DRUG ADMINISTRATION ERROR [None]
  - DRUG INEFFECTIVE [None]
